FAERS Safety Report 6058990-X (Version None)
Quarter: 2009Q1

REPORT INFORMATION
  Report Type: 
  Country: None (occurrence: None)
  Receive Date: 20090130
  Receipt Date: 20090123
  Transmission Date: 20090719
  Serious: Yes (Hospitalization)
  Sender: FDA-Public Use
  Company Number: A0765749A

PATIENT
  Age: 64 Year
  Sex: Female
  Weight: 63.6 kg

DRUGS (6)
  1. AVANDIA [Suspect]
     Route: 048
     Dates: start: 20050101, end: 20070401
  2. ENALAPRIL MALEATE [Concomitant]
  3. NIFEDIPINE [Concomitant]
  4. CLONIDINE HCL [Concomitant]
  5. LASIX [Concomitant]
  6. COZAAR [Concomitant]

REACTIONS (3)
  - CARDIOVASCULAR DISORDER [None]
  - CORONARY ARTERY DISEASE [None]
  - MYOCARDIAL INFARCTION [None]
